FAERS Safety Report 13979621 (Version 2)
Quarter: 2018Q1

REPORT INFORMATION
  Report Type: Report from Study
  Country: US (occurrence: US)
  Receive Date: 20170914
  Receipt Date: 20180205
  Transmission Date: 20180508
  Serious: Yes (Other)
  Sender: FDA-Public Use
  Company Number: US-ASTELLAS-2017US010740

PATIENT
  Sex: Male

DRUGS (1)
  1. ENZALUTAMIDE [Suspect]
     Active Substance: ENZALUTAMIDE
     Indication: HORMONE-REFRACTORY PROSTATE CANCER
     Route: 048
     Dates: start: 2017, end: 2017

REACTIONS (5)
  - Hypoacusis [Recovered/Resolved]
  - Ear infection [Recovered/Resolved]
  - Weight decreased [Unknown]
  - Dysgeusia [Unknown]
  - Ageusia [Unknown]
